FAERS Safety Report 5303151-2 (Version None)
Quarter: 2007Q2

REPORT INFORMATION
  Report Type: 
  Country: None (occurrence: None)
  Receive Date: 20070420
  Receipt Date: 20070409
  Transmission Date: 20071010
  Serious: Yes (Hospitalization)
  Sender: FDA-Public Use
  Company Number: PHEH2007US04708

PATIENT
  Age: 54 Year
  Sex: Female

DRUGS (1)
  1. ZELNORM [Suspect]
     Indication: DIVERTICULITIS
     Dosage: UNK, BID
     Dates: start: 20050101, end: 20070402

REACTIONS (1)
  - TACHYCARDIA [None]
